FAERS Safety Report 13185720 (Version 9)
Quarter: 2019Q1

REPORT INFORMATION
  Report Type: Spontaneous
  Country: US (occurrence: US)
  Receive Date: 20170203
  Receipt Date: 20190221
  Transmission Date: 20190417
  Serious: Yes (Hospitalization, Other)
  Sender: FDA-Public Use
  Company Number: US-MYLANLABS-2017M1005882

PATIENT
  Age: 82 Year
  Sex: Male
  Weight: 81 kg

DRUGS (1)
  1. FENTANYL TRANSDERMAL SYSTEM [Suspect]
     Active Substance: FENTANYL
     Indication: BACK PAIN
     Dosage: 25 ?G, QH, CHANGE Q72HRS
     Route: 062
     Dates: start: 20170123, end: 201701

REACTIONS (46)
  - Cyanosis [Unknown]
  - Dysuria [Not Recovered/Not Resolved]
  - Application site reaction [Not Recovered/Not Resolved]
  - Neck pain [Unknown]
  - Alopecia [Not Recovered/Not Resolved]
  - Dyspnoea [Unknown]
  - Palpitations [Recovered/Resolved]
  - Blood urine present [Unknown]
  - Hyperhidrosis [Unknown]
  - Confusional state [Not Recovered/Not Resolved]
  - Tremor [Not Recovered/Not Resolved]
  - Gait disturbance [Not Recovered/Not Resolved]
  - Malaise [Unknown]
  - Brain injury [Unknown]
  - Lung disorder [Unknown]
  - Balance disorder [Not Recovered/Not Resolved]
  - Hypertension [Unknown]
  - Abdominal pain [Not Recovered/Not Resolved]
  - Deafness [Not Recovered/Not Resolved]
  - Loss of consciousness [Unknown]
  - Wheezing [Unknown]
  - Memory impairment [Unknown]
  - Pain [Unknown]
  - Mood altered [Not Recovered/Not Resolved]
  - Dizziness [Not Recovered/Not Resolved]
  - Nervousness [Not Recovered/Not Resolved]
  - Overdose [Recovered/Resolved]
  - Pulmonary congestion [Not Recovered/Not Resolved]
  - Bradyphrenia [Unknown]
  - Myalgia [Not Recovered/Not Resolved]
  - Arthralgia [Not Recovered/Not Resolved]
  - Affect lability [Unknown]
  - Musculoskeletal stiffness [Not Recovered/Not Resolved]
  - Peripheral swelling [Not Recovered/Not Resolved]
  - Product quality issue [Unknown]
  - Syncope [Not Recovered/Not Resolved]
  - Muscle spasms [Unknown]
  - Thinking abnormal [Unknown]
  - Mobility decreased [Not Recovered/Not Resolved]
  - Vision blurred [Not Recovered/Not Resolved]
  - Nausea [Not Recovered/Not Resolved]
  - Drug effect increased [Unknown]
  - Heart rate decreased [Unknown]
  - Pain in extremity [Not Recovered/Not Resolved]
  - Cough [Unknown]
  - Chills [Not Recovered/Not Resolved]

NARRATIVE: CASE EVENT DATE: 201701
